FAERS Safety Report 25062555 (Version 3)
Quarter: 2025Q1

REPORT INFORMATION
  Report Type: Report from Study
  Country: US (occurrence: US)
  Receive Date: 20250311
  Receipt Date: 20250313
  Transmission Date: 20250409
  Serious: Yes (Other)
  Sender: AIMMUNE
  Company Number: US-ZENPEP LLC-2025AIMT00230

PATIENT

DRUGS (2)
  1. ZENPEP [Suspect]
     Active Substance: PANCRELIPASE AMYLASE\PANCRELIPASE LIPASE\PANCRELIPASE PROTEASE
     Indication: Pancreatic failure
     Route: 048
  2. ZENPEP [Suspect]
     Active Substance: PANCRELIPASE AMYLASE\PANCRELIPASE LIPASE\PANCRELIPASE PROTEASE
     Route: 048

REACTIONS (8)
  - Ankylosing spondylitis [Unknown]
  - Type 1 diabetes mellitus [Unknown]
  - Pancreatic failure [Unknown]
  - Pain [Unknown]
  - Ill-defined disorder [Unknown]
  - Brain fog [Unknown]
  - Fibromyalgia [Unknown]
  - Thyroid disorder [Unknown]
